FAERS Safety Report 25066267 (Version 1)
Quarter: 2025Q1

REPORT INFORMATION
  Report Type: Spontaneous
  Country: FR (occurrence: FR)
  Receive Date: 20250312
  Receipt Date: 20250312
  Transmission Date: 20250408
  Serious: Yes (Other)
  Sender: KYOWA
  Company Number: None

PATIENT

DRUGS (6)
  1. POTELIGEO [Suspect]
     Active Substance: MOGAMULIZUMAB-KPKC
     Indication: Cutaneous T-cell lymphoma
     Dosage: 80 MG, 1X/2 WEEKS
     Route: 042
     Dates: start: 20240130, end: 20240626
  2. HYDROCORTISONE ACEPONATE [Concomitant]
     Active Substance: HYDROCORTISONE ACEPONATE
     Indication: Product used for unknown indication
     Route: 065
  3. GABAPENTIN [Concomitant]
     Active Substance: GABAPENTIN
     Indication: Product used for unknown indication
     Route: 065
  4. CANDESARTAN CILEXETIL [Concomitant]
     Active Substance: CANDESARTAN CILEXETIL
     Indication: Product used for unknown indication
     Route: 065
  5. AERIUS (DESLORATADINE) [Concomitant]
     Active Substance: DESLORATADINE
     Indication: Product used for unknown indication
     Route: 065
  6. DESONIDE [Concomitant]
     Active Substance: DESONIDE
     Indication: Product used for unknown indication
     Route: 065

REACTIONS (1)
  - Kaposi^s sarcoma [Not Recovered/Not Resolved]

NARRATIVE: CASE EVENT DATE: 20240711
